FAERS Safety Report 9270169 (Version 2)
Quarter: 2013Q3

REPORT INFORMATION
  Report Type: Spontaneous
  Country: US (occurrence: US)
  Receive Date: 20130503
  Receipt Date: 20130909
  Transmission Date: 20140515
  Serious: Yes (Life-Threatening, Hospitalization)
  Sender: FDA-Public Use
  Company Number: US-GLAXOSMITHKLINE-A1022394A

PATIENT
  Age: 61 Year
  Sex: Female

DRUGS (6)
  1. VOTRIENT [Suspect]
     Indication: RENAL CANCER
     Dosage: 800MG PER DAY
     Route: 048
     Dates: start: 20130314, end: 20130401
  2. CALCIUM + VITAMIN D [Concomitant]
     Route: 048
  3. COZAAR [Concomitant]
     Dosage: 25MG PER DAY
     Route: 048
  4. OXYCODONE [Concomitant]
     Route: 048
  5. AMBIEN [Concomitant]
     Dosage: 5MG AT NIGHT
     Route: 048
  6. MAGNESIUM GLUCONATE [Concomitant]
     Dosage: 500MG THREE TIMES PER DAY
     Route: 048

REACTIONS (4)
  - Acute myocardial infarction [Recovering/Resolving]
  - Hypertensive crisis [Recovering/Resolving]
  - Myocardial ischaemia [Recovering/Resolving]
  - Stress cardiomyopathy [Recovering/Resolving]
